FAERS Safety Report 24555147 (Version 1)
Quarter: 2024Q4

REPORT INFORMATION
  Report Type: Spontaneous
  Country: SE (occurrence: SE)
  Receive Date: 20241028
  Receipt Date: 20241028
  Transmission Date: 20250115
  Serious: Yes (Other)
  Sender: RANBAXY
  Company Number: SE-SUN PHARMACEUTICAL INDUSTRIES LTD-2024RR-475282

PATIENT
  Sex: Female

DRUGS (2)
  1. ATORVASTATIN [Suspect]
     Active Substance: ATORVASTATIN
     Indication: Angina pectoris
     Dosage: 80 MILLIGRAM, DAILY
     Route: 065
     Dates: start: 20220802, end: 20231119
  2. ATORVASTATIN [Suspect]
     Active Substance: ATORVASTATIN
     Indication: Myocardial infarction

REACTIONS (1)
  - Colitis microscopic [Recovered/Resolved with Sequelae]

NARRATIVE: CASE EVENT DATE: 20240101
